FAERS Safety Report 17124136 (Version 2)
Quarter: 2019Q4

REPORT INFORMATION
  Report Type: Spontaneous
  Country: CA (occurrence: CA)
  Receive Date: 20191206
  Receipt Date: 20191231
  Transmission Date: 20200122
  Serious: Yes (Other)
  Sender: FDA-Public Use
  Company Number: CA-SHIRE-CA201940966

PATIENT

DRUGS (1)
  1. GAMMAGARD LIQUID [Suspect]
     Active Substance: HUMAN IMMUNOGLOBULIN G
     Indication: IMMUNE THROMBOCYTOPENIC PURPURA
     Dosage: 30 GRAM, ONCE
     Route: 042
     Dates: start: 20190712, end: 20190713

REACTIONS (1)
  - Haemolytic transfusion reaction [Recovering/Resolving]

NARRATIVE: CASE EVENT DATE: 20190713
